FAERS Safety Report 9276517 (Version 1)
Quarter: 2013Q2

REPORT INFORMATION
  Report Type: Spontaneous
  Country: FR (occurrence: FR)
  Receive Date: 20130507
  Receipt Date: 20130507
  Transmission Date: 20140414
  Serious: Yes (Hospitalization)
  Sender: FDA-Public Use
  Company Number: FR-B.I. PHARMACEUTICALS,INC./RIDGEFIELD-2013-FF-01304FF

PATIENT
  Age: 79 Year
  Sex: Male

DRUGS (9)
  1. PRADAXA [Suspect]
     Dosage: 220 MG
     Route: 048
     Dates: start: 20121227
  2. HEMIGOXINE NATIVELLE [Concomitant]
     Dosage: 0.125 MG
     Route: 048
  3. PERINDOPRIL [Concomitant]
     Dosage: 4 MG
     Route: 048
  4. LASILIX [Concomitant]
     Dosage: 80 MG
     Route: 048
  5. XATRAL [Concomitant]
     Dosage: 10 MG
     Route: 048
  6. MIANSERINE [Concomitant]
     Dosage: 10 MG
     Route: 048
  7. ALPRAZOLAM [Concomitant]
     Dosage: 0.25 MG
     Route: 048
  8. FORLAX [Concomitant]
     Dosage: 10 G
     Route: 048
  9. SYMBICORT TURBUHALER [Concomitant]
     Dosage: 400 MCG
     Route: 055

REACTIONS (2)
  - Ischaemic stroke [Recovered/Resolved with Sequelae]
  - Drug ineffective [Recovered/Resolved with Sequelae]
